FAERS Safety Report 4906517-5 (Version None)
Quarter: 2006Q1

REPORT INFORMATION
  Report Type: 
  Country: None (occurrence: None)
  Receive Date: 20060209
  Receipt Date: 20060131
  Transmission Date: 20060701
  Serious: Yes (Hospitalization, Other)
  Sender: FDA-Public Use
  Company Number: PHBS2006CH01768

PATIENT
  Age: 56 Year
  Sex: Male

DRUGS (5)
  1. NOCTAMID [Concomitant]
     Indication: INSOMNIA
  2. TRANSTEC TTS [Concomitant]
     Indication: CANCER PAIN
  3. PARACETAMOL [Concomitant]
     Indication: CANCER PAIN
  4. GLEEVEC [Suspect]
     Indication: CHRONIC MYELOID LEUKAEMIA
     Dates: start: 19990101, end: 20050901
  5. GLEEVEC [Suspect]
     Dates: start: 20060101, end: 20060101

REACTIONS (6)
  - CANCER PAIN [None]
  - PANCYTOPENIA [None]
  - PYREXIA [None]
  - SALMONELLA SEPSIS [None]
  - SARCOMA [None]
  - THROMBOCYTOPENIA [None]
